FAERS Safety Report 7338932-7 (Version None)
Quarter: 2011Q1

REPORT INFORMATION
  Report Type: 
  Country: None (occurrence: None)
  Receive Date: 20110308
  Receipt Date: 20110303
  Transmission Date: 20110831
  Serious: Yes (Hospitalization, Other)
  Sender: FDA-Public Use
  Company Number: JP-AMGEN-JPNSP2010001497

PATIENT
  Age: 13 Year
  Sex: Female

DRUGS (10)
  1. BAKTAR [Suspect]
     Indication: SMALL INTESTINE TRANSPLANT
     Dosage: UNK
     Route: 048
     Dates: start: 20091127, end: 20100519
  2. MYCOCYST [Suspect]
     Indication: PRODUCT USED FOR UNKNOWN INDICATION
     Dosage: 100 MG, UNK
     Route: 048
     Dates: start: 20091127
  3. NEUPOGEN [Suspect]
     Indication: PRODUCT USED FOR UNKNOWN INDICATION
     Dosage: 50 A?G, QD
     Route: 042
     Dates: start: 20100519, end: 20100522
  4. ACICLOVIR [Suspect]
     Indication: SMALL INTESTINE TRANSPLANT
     Dosage: UNK
     Route: 048
     Dates: start: 20091130
  5. TAKEPRON [Suspect]
     Indication: PRODUCT USED FOR UNKNOWN INDICATION
     Dosage: 15 MG, UNK
     Route: 048
     Dates: start: 20091127
  6. DIPYRIDAMOLE [Concomitant]
     Dosage: UNK
     Dates: start: 20091127, end: 20100513
  7. BIOFERMIN [Concomitant]
     Dosage: UNK
     Dates: start: 20091127
  8. VALGANCICLOVIR [Suspect]
     Indication: SMALL INTESTINE TRANSPLANT
     Dosage: 450 MG, UNK
     Route: 048
     Dates: start: 20091127, end: 20100519
  9. PREDNISOLONE [Suspect]
     Indication: PRODUCT USED FOR UNKNOWN INDICATION
     Dosage: 10 MG, UNK
     Route: 048
     Dates: start: 20091127
  10. PROGRAF [Suspect]
     Indication: PRODUCT USED FOR UNKNOWN INDICATION
     Dosage: 7 MG, UNK
     Route: 048
     Dates: start: 20091127

REACTIONS (16)
  - NEUTROPENIA [None]
  - PNEUMONIA [None]
  - INGUINAL HERNIA REPAIR [None]
  - HYPERPARATHYROIDISM SECONDARY [None]
  - CYTOMEGALOVIRUS ENTERITIS [None]
  - ANAEMIA [None]
  - MENISCUS LESION [None]
  - ARTHRITIS INFECTIVE [None]
  - DERMAL CYST [None]
  - CARDIAC MURMUR [None]
  - FOLLICULITIS [None]
  - WHITE BLOOD CELL COUNT DECREASED [None]
  - HYPERLIPIDAEMIA [None]
  - GALLBLADDER POLYP [None]
  - NO THERAPEUTIC RESPONSE [None]
  - RETROPERITONEAL HAEMORRHAGE [None]
